FAERS Safety Report 21816412 (Version 1)
Quarter: 2023Q1

REPORT INFORMATION
  Report Type: Report from Study
  Country: IN (occurrence: IN)
  Receive Date: 20230104
  Receipt Date: 20230104
  Transmission Date: 20230417
  Serious: Yes (Hospitalization)
  Sender: FDA-Public Use
  Company Number: IN-MYLANLABS-2022M1142759

PATIENT
  Age: 66 Year
  Sex: Male

DRUGS (2)
  1. BUPIVACAINE [Suspect]
     Active Substance: BUPIVACAINE
     Indication: Spinal anaesthesia
     Dosage: 20 MILLILITER, INJECTED ON EACH SIDE OF SPINE 20 MINUTES..
     Route: 037
  2. DEXAMETHASONE [Suspect]
     Active Substance: DEXAMETHASONE
     Indication: Spinal anaesthesia
     Dosage: 20 MILLILITER, INJECTED ON EACH SIDE OF SPINE..
     Route: 037

REACTIONS (1)
  - Paraplegia [Recovered/Resolved]
